FAERS Safety Report 25123502 (Version 1)
Quarter: 2025Q1

REPORT INFORMATION
  Report Type: Spontaneous
  Country: US (occurrence: US)
  Receive Date: 20250326
  Receipt Date: 20250326
  Transmission Date: 20250409
  Serious: No
  Sender: GRIFOLS
  Company Number: US-IGSA-BIG0032095

PATIENT
  Age: 41 Year
  Sex: Male
  Weight: 108.84 kg

DRUGS (4)
  1. PROLASTIN-C LIQUID [Suspect]
     Active Substance: .ALPHA.1-PROTEINASE INHIBITOR HUMAN
     Indication: Alpha-1 antitrypsin deficiency
     Route: 042
     Dates: start: 20241212
  2. EPINEPHRINE [Concomitant]
     Active Substance: EPINEPHRINE
  3. LIDOCAINE 4% MENTHOL 4% [Concomitant]
     Active Substance: LIDOCAINE\MENTHOL
  4. DEXTROSE\SODIUM CHLORIDE [Concomitant]
     Active Substance: DEXTROSE\SODIUM CHLORIDE

REACTIONS (1)
  - Blood pressure diastolic increased [Unknown]

NARRATIVE: CASE EVENT DATE: 20241212
